FAERS Safety Report 24277249 (Version 1)
Quarter: 2024Q3

REPORT INFORMATION
  Report Type: Report from Study
  Country: CA (occurrence: CA)
  Receive Date: 20240903
  Receipt Date: 20240903
  Transmission Date: 20241016
  Serious: Yes (Hospitalization, Other)
  Sender: TAKEDA
  Company Number: CA-TAKEDA-2024TUS052789

PATIENT
  Age: 0 Year
  Sex: Female
  Weight: 9.6 kg

DRUGS (3)
  1. HUMAN IMMUNOGLOBULIN G [Suspect]
     Active Substance: HUMAN IMMUNOGLOBULIN G
     Indication: Primary immunodeficiency syndrome
     Dosage: 1 GRAM, 1/WEEK
     Route: 058
     Dates: start: 20240524
  2. HUMAN IMMUNOGLOBULIN G [Suspect]
     Active Substance: HUMAN IMMUNOGLOBULIN G
     Dosage: UNK UNK, 1/WEEK
     Route: 058
  3. VITAMIN D [Concomitant]
     Active Substance: VITAMIN D NOS
     Dosage: 400 INTERNATIONAL UNIT, QD
     Route: 065

REACTIONS (14)
  - Gastroenteritis rotavirus [Unknown]
  - Metabolic acidosis [Unknown]
  - Upper respiratory tract infection [Unknown]
  - Dehydration [Unknown]
  - COVID-19 [Unknown]
  - Human bocavirus infection [Unknown]
  - Urinary tract infection [Recovered/Resolved]
  - Diarrhoea [Recovered/Resolved]
  - Product use issue [Unknown]
  - Injection site urticaria [Recovered/Resolved]
  - Impetigo [Unknown]
  - Injection site erythema [Unknown]
  - Vomiting [Recovered/Resolved]
  - Pyrexia [Recovered/Resolved]

NARRATIVE: CASE EVENT DATE: 20240501
